FAERS Safety Report 26148857 (Version 1)
Quarter: 2025Q4

REPORT INFORMATION
  Report Type: Spontaneous
  Country: EU (occurrence: EU)
  Receive Date: 20251212
  Receipt Date: 20251212
  Transmission Date: 20260118
  Serious: Yes (Other)
  Sender: STRIDES
  Company Number: EU-STRIDES ARCOLAB LIMITED-2025SP015367

PATIENT
  Age: 40 Year
  Sex: Female

DRUGS (7)
  1. HYDROCORTISONE [Suspect]
     Active Substance: HYDROCORTISONE
     Indication: Optic ischaemic neuropathy
     Dosage: UNK
     Route: 065
     Dates: start: 2024
  2. BENRALIZUMAB [Concomitant]
     Active Substance: BENRALIZUMAB
     Indication: Eosinophilic granulomatosis with polyangiitis
     Dosage: UNK
     Route: 065
  3. AMIODARONE [Concomitant]
     Active Substance: AMIODARONE
     Indication: Ventricular tachycardia
     Dosage: UNK
     Route: 065
     Dates: end: 2024
  4. METHYLPREDNISOLONE [Concomitant]
     Active Substance: METHYLPREDNISOLONE
     Indication: Optic ischaemic neuropathy
     Dosage: UNK
     Route: 042
     Dates: start: 202410, end: 2024
  5. Immunoglobulin [Concomitant]
     Indication: Optic ischaemic neuropathy
     Dosage: UNK
     Route: 042
     Dates: start: 2024
  6. ATENOLOL [Concomitant]
     Active Substance: ATENOLOL
     Indication: Ventricular tachycardia
     Dosage: UNK
     Route: 065
     Dates: start: 2024
  7. ENOXAPARIN [Concomitant]
     Active Substance: ENOXAPARIN
     Indication: Anticoagulant therapy
     Dosage: UNK
     Route: 065

REACTIONS (2)
  - Disease progression [Unknown]
  - Off label use [Unknown]
